FAERS Safety Report 4966598-X (Version None)
Quarter: 2006Q1

REPORT INFORMATION
  Report Type: 
  Country: None (occurrence: None)
  Receive Date: 20060201
  Receipt Date: 20051219
  Transmission Date: 20060701
  Serious: No
  Sender: FDA-Public Use
  Company Number: 2005PV006078

PATIENT
  Age: 69 Year
  Sex: Female
  Weight: 149.687 kg

DRUGS (10)
  1. BYETTA [Suspect]
     Indication: DIABETES MELLITUS NON-INSULIN-DEPENDENT
     Dosage: 5 MCG;BID;SC
     Route: 058
     Dates: start: 20051123, end: 20051216
  2. SINUTAB [Concomitant]
  3. LIPITOR [Concomitant]
  4. NORVASC [Concomitant]
  5. ATENOLOL [Concomitant]
  6. DIURIL [Concomitant]
  7. CELEXA [Concomitant]
  8. ATIVAN [Concomitant]
  9. LAXATIVES [Concomitant]
  10. ACTOS [Concomitant]

REACTIONS (5)
  - DECREASED APPETITE [None]
  - DIZZINESS [None]
  - HEADACHE [None]
  - NAUSEA [None]
  - RASH PRURITIC [None]
